FAERS Safety Report 15832167 (Version 1)
Quarter: 2019Q1

REPORT INFORMATION
  Report Type: Spontaneous
  Country: JP (occurrence: JP)
  Receive Date: 20190116
  Receipt Date: 20190116
  Transmission Date: 20190417
  Serious: Yes (Other)
  Sender: FDA-Public Use
  Company Number: JP-ROCHE-2246624

PATIENT
  Age: 73 Year
  Sex: Male

DRUGS (5)
  1. CARBOPLATIN. [Concomitant]
     Active Substance: CARBOPLATIN
     Indication: NON-SMALL CELL LUNG CANCER
     Dosage: ADMINISTRATION PERIOD: 6 CYCLES
     Route: 041
  2. PACLITAXEL PROTEIN-BOUND/ALBUMIN [Concomitant]
     Active Substance: PACLITAXEL
     Indication: NON-SMALL CELL LUNG CANCER
     Dosage: ADMINISTRATION PERIOD: 6 CYCLES
     Route: 041
  3. AVASTIN [Suspect]
     Active Substance: BEVACIZUMAB
     Dosage: ADMINISTRATION PERIOD: 11 CYCLES
     Route: 041
  4. AVASTIN [Suspect]
     Active Substance: BEVACIZUMAB
     Indication: NON-SMALL CELL LUNG CANCER
     Dosage: ADMINISTRATION PERIOD: 6 CYCLES
     Route: 041
  5. PACLITAXEL PROTEIN-BOUND/ALBUMIN [Concomitant]
     Active Substance: PACLITAXEL
     Dosage: DOSAGE IS UNCERTAIN. ?ADMINISTRATION PERIOD: 11 CYCLES
     Route: 041

REACTIONS (2)
  - Pneumothorax [Unknown]
  - Respiratory tract infection bacterial [Recovering/Resolving]
